FAERS Safety Report 24642781 (Version 2)
Quarter: 2025Q2

REPORT INFORMATION
  Report Type: Spontaneous
  Country: DE (occurrence: DE)
  Receive Date: 20241120
  Receipt Date: 20250626
  Transmission Date: 20250716
  Serious: Yes (Other)
  Sender: NOVARTIS
  Company Number: None

PATIENT
  Age: 10 Year
  Sex: Male

DRUGS (16)
  1. CYCLOSPORINE [Suspect]
     Active Substance: CYCLOSPORINE
     Indication: Immunosuppressant drug therapy
     Route: 065
  2. CYCLOSPORINE [Suspect]
     Active Substance: CYCLOSPORINE
     Indication: Prophylaxis against transplant rejection
     Route: 065
  3. ATG-FRESENIUS [Suspect]
     Active Substance: LAPINE T-LYMPHOCYTE IMMUNE GLOBULIN
     Indication: Prophylaxis against transplant rejection
     Dosage: 15 MG/KG, QD ON DAYS -4 TO -2
     Route: 065
  4. FLUDARABINE [Suspect]
     Active Substance: FLUDARABINE PHOSPHATE
     Indication: Prophylaxis against transplant rejection
     Dosage: 40 MG/M2, QD ON DAYS -6 TO -3
     Route: 065
  5. METHOTREXATE [Suspect]
     Active Substance: METHOTREXATE
     Indication: Prophylaxis against transplant rejection
     Dosage: 10 MG/M2, QD (AT DAYS + 1, +3 AND +6 POST-TRANSPLANTATION)
     Route: 065
  6. METHOTREXATE [Suspect]
     Active Substance: METHOTREXATE
     Indication: Immunosuppressant drug therapy
  7. RIBAVIRIN [Suspect]
     Active Substance: RIBAVIRIN
     Indication: Hepatitis C
     Dosage: 20 MG/KG, QD
     Route: 065
  8. RITUXIMAB [Suspect]
     Active Substance: RITUXIMAB
     Indication: Cytopenia
     Route: 065
  9. RITUXIMAB [Suspect]
     Active Substance: RITUXIMAB
     Indication: Myelodysplastic syndrome
     Route: 042
  10. SOFOSBUVIR [Suspect]
     Active Substance: SOFOSBUVIR
     Indication: Hepatitis C
     Route: 065
  11. THIOTEPA [Suspect]
     Active Substance: THIOTEPA
     Indication: Stem cell transplant
     Route: 065
  12. THIOTEPA [Suspect]
     Active Substance: THIOTEPA
     Indication: Prophylaxis against transplant rejection
  13. TREOSULFAN [Suspect]
     Active Substance: TREOSULFAN
     Indication: Prophylaxis against transplant rejection
     Dosage: 14000 MG/M2, QD ON DAYS -6 TO -4
     Route: 065
  14. AMPHOTERICIN B [Suspect]
     Active Substance: AMPHOTERICIN B
     Indication: Prophylaxis
     Route: 065
  15. HYDROCORTISONE [Concomitant]
     Active Substance: HYDROCORTISONE
     Indication: Prophylaxis against transplant rejection
     Route: 065
  16. VALACYCLOVIR HYDROCHLORIDE [Concomitant]
     Active Substance: VALACYCLOVIR HYDROCHLORIDE
     Indication: Prophylaxis
     Route: 065

REACTIONS (5)
  - Cytomegalovirus infection reactivation [Recovered/Resolved]
  - Soft tissue infection [Unknown]
  - Graft versus host disease in gastrointestinal tract [Unknown]
  - Intentional product use issue [Unknown]
  - Off label use [Unknown]
